FAERS Safety Report 6776855-2 (Version None)
Quarter: 2010Q2

REPORT INFORMATION
  Report Type: 
  Country: None (occurrence: None)
  Receive Date: 20100617
  Receipt Date: 20100604
  Transmission Date: 20101027
  Serious: Yes (Disabling)
  Sender: FDA-Public Use
  Company Number: DE-MYLANLABS-2010S1007439

PATIENT
  Age: 82 Year
  Sex: Male

DRUGS (1)
  1. CARBIDOPA + L-DOPA [Suspect]
     Indication: PARKINSON'S DISEASE
     Route: 048
     Dates: start: 20090701

REACTIONS (4)
  - DYSPHAGIA [None]
  - FATIGUE [None]
  - MUSCULOSKELETAL STIFFNESS [None]
  - VARICOSE VEIN [None]
